FAERS Safety Report 11796281 (Version 3)
Quarter: 2016Q1

REPORT INFORMATION
  Report Type: Spontaneous
  Country: ZA (occurrence: ZA)
  Receive Date: 20151203
  Receipt Date: 20160122
  Transmission Date: 20160525
  Serious: Yes (Death, Other)
  Sender: FDA-Public Use
  Company Number: ZA-IROKO PHARMACEUTICALS LLC-ZA-I09001-15-00192

PATIENT
  Age: 10 Day
  Sex: Female
  Weight: 1.9 kg

DRUGS (11)
  1. VITAMINE [Concomitant]
     Indication: PRODUCT USED FOR UNKNOWN INDICATION
     Route: 065
  2. SIMVASTATIN. [Concomitant]
     Active Substance: SIMVASTATIN
     Indication: PRODUCT USED FOR UNKNOWN INDICATION
     Route: 065
     Dates: start: 2011
  3. VALGANCYCLOVIR [Concomitant]
     Active Substance: VALGANCICLOVIR
     Indication: CYTOMEGALOVIRUS INFECTION
     Route: 048
  4. INDOCIN [Suspect]
     Active Substance: INDOMETHACIN\INDOMETHACIN SODIUM
     Indication: CONGENITAL NEPHROTIC SYNDROME
     Dosage: LOW DOSE TITRATED TO MAXIMUM DOSE.
     Route: 048
     Dates: start: 201108, end: 201311
  5. THYROXINE [Concomitant]
     Active Substance: LEVOTHYROXINE
     Indication: PRODUCT USED FOR UNKNOWN INDICATION
     Route: 065
     Dates: start: 2011
  6. SPIRONOLACTONE. [Concomitant]
     Active Substance: SPIRONOLACTONE
     Indication: CONGENITAL NEPHROTIC SYNDROME
     Route: 065
     Dates: start: 2011
  7. IRON [Concomitant]
     Active Substance: IRON
     Indication: PRODUCT USED FOR UNKNOWN INDICATION
     Route: 065
  8. ALBUMIN [Concomitant]
     Active Substance: ALBUMIN (HUMAN)
     Indication: CONGENITAL NEPHROTIC SYNDROME
     Route: 065
     Dates: start: 2011
  9. HYDROCHLORTIAZIDE [Concomitant]
     Active Substance: HYDROCHLOROTHIAZIDE
     Indication: CONGENITAL NEPHROTIC SYNDROME
     Route: 065
     Dates: start: 2011
  10. ENALAPRIL [Concomitant]
     Active Substance: ENALAPRIL
     Indication: CONGENITAL NEPHROTIC SYNDROME
     Route: 065
     Dates: start: 2011
  11. GANCYCLOVIR [Concomitant]
     Active Substance: GANCICLOVIR
     Indication: CYTOMEGALOVIRUS INFECTION
     Route: 065

REACTIONS (2)
  - Thrombocytopenia [Recovered/Resolved]
  - Off label use [Unknown]

NARRATIVE: CASE EVENT DATE: 201108
